FAERS Safety Report 7506008-1 (Version None)
Quarter: 2011Q2

REPORT INFORMATION
  Report Type: 
  Country: None (occurrence: None)
  Receive Date: 20110526
  Receipt Date: 20110517
  Transmission Date: 20111010
  Serious: Yes (Hospitalization, Other)
  Sender: FDA-Public Use
  Company Number: PHHY2010JP22283

PATIENT
  Age: 69 Year
  Sex: Female
  Weight: 40 kg

DRUGS (24)
  1. ENTOMOL [Concomitant]
     Dosage: 3 G, UNK
     Route: 048
     Dates: start: 20090804, end: 20090810
  2. AMOXICILLIN [Concomitant]
     Dosage: 1500 MG, UNK
     Route: 048
     Dates: start: 20090804, end: 20090810
  3. PLETAL [Concomitant]
     Dosage: UNK
     Route: 048
     Dates: end: 20090730
  4. MUCOSTA [Concomitant]
     Dosage: 300 MG
     Route: 048
     Dates: start: 20070823
  5. DECADRON [Suspect]
     Dosage: 40 MG DAILY
     Route: 042
     Dates: start: 20090808, end: 20090811
  6. ALMARL [Concomitant]
     Indication: HYPERTENSION
     Dosage: 20 MG, UNK
     Route: 048
     Dates: start: 20070404, end: 20090408
  7. MICARDIS [Concomitant]
     Indication: HYPERTENSION
     Dosage: 80 MG, UNK
     Route: 048
     Dates: start: 20070508, end: 20080924
  8. WARFARIN SODIUM [Concomitant]
     Dosage: 1 MG, UNK
     Route: 048
     Dates: end: 20090827
  9. VALSARTAN [Suspect]
     Indication: HYPERTENSION
     Dosage: 160 MG, QD
     Route: 048
     Dates: start: 20080925, end: 20091213
  10. AROTINOLOL HYDROCHLORIDE [Concomitant]
     Indication: HYPERTENSION
     Dosage: 20 MG, UNK
     Route: 048
     Dates: start: 20090409
  11. HUMULIN R [Concomitant]
     Dosage: 6 IU, UNK
     Route: 042
     Dates: end: 20090819
  12. AMOBAN [Concomitant]
     Dosage: 7.5 MG
     Route: 048
     Dates: start: 20070702
  13. DECADRON [Suspect]
     Dosage: 40 MG DAILY
     Route: 042
     Dates: start: 20090730, end: 20090803
  14. ATELEC [Concomitant]
     Indication: HYPERTENSION
     Dosage: 10 MG, UNK
     Route: 048
     Dates: start: 20080925
  15. LANSOPRAZOLE [Concomitant]
     Dosage: 60 MG, UNK
     Route: 048
     Dates: end: 20090804
  16. VALSARTAN [Suspect]
     Dosage: 80 MG, QD
     Route: 048
     Dates: start: 20091214
  17. DECADRON [Suspect]
     Dosage: 40 MG DAILY
     Route: 042
     Dates: start: 20090816, end: 20090819
  18. FAMOTIDINE [Concomitant]
     Dosage: 20 MG, UNK
     Route: 048
     Dates: start: 20090813
  19. HUMULIN R [Concomitant]
     Dosage: 6 IU, UNK
     Route: 042
     Dates: start: 20090731
  20. LANSOPRAZOLE [Concomitant]
     Dosage: 60 MG, UNK
     Route: 048
     Dates: start: 20090805, end: 20090813
  21. DEPAS [Concomitant]
     Dosage: 1 MG
     Route: 048
     Dates: start: 20070920
  22. CLARITHROMYCIN [Concomitant]
     Dosage: 800 MG, UNK
     Route: 048
     Dates: start: 20090804, end: 20090810
  23. SULFAMETHOXAZOLE [Concomitant]
     Dosage: 1 DF, UNK
     Route: 048
     Dates: start: 20090731
  24. SERMION [Concomitant]
     Dosage: 15 MG
     Route: 048
     Dates: start: 20070425

REACTIONS (8)
  - ATRIAL FIBRILLATION [None]
  - HYPOTENSION [None]
  - HYPERGLYCAEMIA [None]
  - HELICOBACTER INFECTION [None]
  - IDIOPATHIC THROMBOCYTOPENIC PURPURA [None]
  - HAEMORRHAGE SUBCUTANEOUS [None]
  - PETECHIAE [None]
  - HELICOBACTER TEST POSITIVE [None]
